FAERS Safety Report 8432451-2 (Version None)
Quarter: 2012Q2

REPORT INFORMATION
  Report Type: 
  Country: None (occurrence: None)
  Receive Date: 20120607
  Receipt Date: 20120604
  Transmission Date: 20120825
  Serious: Yes (Hospitalization)
  Sender: FDA-Public Use
  Company Number: AUR-APL-2012-02509

PATIENT
  Sex: Male
  Weight: 2 kg

DRUGS (2)
  1. VIRAFERONPEG [Suspect]
     Indication: MATERNAL EXPOSURE DURING PREGNANCY
     Dosage: TRANSPLACENTAL
     Route: 064
  2. RIBAVIRIN [Suspect]
     Indication: MATERNAL EXPOSURE DURING PREGNANCY
     Dosage: TRANSPLACENTAL
     Route: 064

REACTIONS (3)
  - EXPOSURE VIA FATHER [None]
  - APGAR SCORE LOW [None]
  - EXPOSURE VIA SEMEN [None]
